FAERS Safety Report 9511689 (Version 1)
Quarter: 2013Q3

REPORT INFORMATION
  Report Type: Spontaneous
  Country: US (occurrence: None)
  Receive Date: 20130909
  Receipt Date: 20130909
  Transmission Date: 20140515
  Serious: Yes (Disabling)
  Sender: FDA-Public Use
  Company Number: None

PATIENT
  Age: 68 Year
  Sex: Male
  Weight: 81.65 kg

DRUGS (1)
  1. CIPROFLOXIN [Suspect]
     Indication: PROSTATE INFECTION
     Dosage: 1PILLS TWICE DAILY TAKEN BY MOUTH
     Route: 048
     Dates: start: 20120101, end: 20120130

REACTIONS (7)
  - Allodynia [None]
  - Tendon rupture [None]
  - Neuropathy peripheral [None]
  - Pain in extremity [None]
  - Back pain [None]
  - Pain in extremity [None]
  - Pain in extremity [None]
